FAERS Safety Report 9442315 (Version 1)
Quarter: 2013Q3

REPORT INFORMATION
  Report Type: Spontaneous
  Country: US (occurrence: US)
  Receive Date: 20130806
  Receipt Date: 20130806
  Transmission Date: 20140515
  Serious: No
  Sender: FDA-Public Use
  Company Number: US-GLAXOSMITHKLINE-A1000910A

PATIENT
  Age: 79 Year
  Sex: Male

DRUGS (8)
  1. ADVAIR [Suspect]
     Indication: ASTHMA
     Dosage: 2SPR TWICE PER DAY
     Route: 055
     Dates: start: 20121113
  2. SPIRIVA [Concomitant]
  3. PROVENTIL [Concomitant]
  4. LISINOPRIL [Concomitant]
  5. ONE A DAY VITAMIN [Concomitant]
  6. VITAMIN D [Concomitant]
  7. TYLENOL PM [Concomitant]
  8. GUAIFENESIN [Concomitant]

REACTIONS (1)
  - Drug ineffective [Unknown]
